FAERS Safety Report 24808627 (Version 1)
Quarter: 2025Q1

REPORT INFORMATION
  Report Type: Other
  Country: US (occurrence: US)
  Receive Date: 20250106
  Receipt Date: 20250106
  Transmission Date: 20250409
  Serious: Yes (Hospitalization, Other)
  Sender: ANI
  Company Number: US-ANIPHARMA-015293

PATIENT
  Sex: Male

DRUGS (2)
  1. IBUPROFEN [Suspect]
     Active Substance: IBUPROFEN
     Indication: Product used for unknown indication
  2. DIPHENHYDRAMINE [Concomitant]
     Active Substance: DIPHENHYDRAMINE
     Indication: Product used for unknown indication

REACTIONS (11)
  - Acute respiratory distress syndrome [Recovering/Resolving]
  - Overdose [Unknown]
  - Metabolic acidosis [Recovering/Resolving]
  - Respiratory acidosis [Recovering/Resolving]
  - Renal failure [Unknown]
  - Hyperkalaemia [Unknown]
  - Electrocardiogram QT prolonged [Unknown]
  - Hypotension [Unknown]
  - Cardiac arrest [Unknown]
  - Aspiration [Unknown]
  - Coma [Unknown]
